FAERS Safety Report 8775880 (Version 6)
Quarter: 2014Q2

REPORT INFORMATION
  Report Type: Report from Study
  Country: US (occurrence: US)
  Receive Date: 20120910
  Receipt Date: 20140422
  Transmission Date: 20141212
  Serious: Yes (Hospitalization)
  Sender: FDA-Public Use
  Company Number: US-ROCHE-1120338

PATIENT
  Age: 60 Year
  Sex: Male
  Weight: 77 kg

DRUGS (3)
  1. PEG-INTERFERON ALFA 2A [Suspect]
     Indication: CHRONIC HEPATITIS C
     Dosage: DATE OF MOST RECENT DOSE 11/AUG/2012
     Route: 065
     Dates: start: 20120714
  2. RIBAVIRIN [Suspect]
     Indication: CHRONIC HEPATITIS C
     Dosage: DATE OF MOST RECENT DOSE 12/AUG/2012
     Route: 065
     Dates: start: 20120714
  3. TELAPREVIR [Suspect]
     Indication: CHRONIC HEPATITIS C
     Dosage: DATE OF MOST RECENT DOSE 12/AUG/2012
     Route: 065
     Dates: start: 20120714

REACTIONS (2)
  - Peritonitis bacterial [Recovered/Resolved]
  - Renal failure [Recovered/Resolved]
